FAERS Safety Report 8819856 (Version 2)
Quarter: 2012Q4

REPORT INFORMATION
  Report Type: 
  Country: JP (occurrence: JP)
  Receive Date: 20121001
  Receipt Date: 20121121
  Transmission Date: 20130627
  Serious: No
  Sender: FDA-Public Use
  Company Number: JP-JNJFOC-20120909337

PATIENT
  Age: 89 Year
  Sex: Female

DRUGS (1)
  1. DUROTEP MT [Suspect]
     Indication: FIBROMYALGIA
     Route: 062
     Dates: start: 20120917

REACTIONS (3)
  - Dizziness [Recovered/Resolved]
  - Incorrect drug administration duration [Unknown]
  - Drug prescribing error [Unknown]
